FAERS Safety Report 10381828 (Version 1)
Quarter: 2014Q3

REPORT INFORMATION
  Report Type: Spontaneous
  Country: GB (occurrence: None)
  Receive Date: 20140811
  Receipt Date: 20140811
  Transmission Date: 20150326
  Serious: Yes (Life-Threatening, Other)
  Sender: FDA-Public Use
  Company Number: FK201403178

PATIENT
  Age: 41 Week
  Sex: Male

DRUGS (9)
  1. METHOTREXATE (MANUFACTURER UNKNOWN) (METHOTREXATE) (METHOTREXATE) [Suspect]
     Active Substance: METHOTREXATE
     Indication: BURKITT^S LYMPHOMA
     Dates: start: 201306
  2. ZAPONEX [Suspect]
     Active Substance: CLOZAPINE
     Indication: PRODUCT USED FOR UNKNOWN INDICATION
     Route: 048
     Dates: start: 20100618
  3. SODIUM BICARBONATE. [Concomitant]
     Active Substance: SODIUM BICARBONATE
  4. GRANISETRON [Concomitant]
     Active Substance: GRANISETRON
  5. FILGRASTIM [Concomitant]
     Active Substance: FILGRASTIM
  6. DOXORUBICIN (DOXORUBICIN) (DOXORUBICIN) [Suspect]
     Active Substance: DOXORUBICIN
     Indication: BURKITT^S LYMPHOMA
     Dosage: NOT OTHERWISE SPECIFIED
     Route: 042
     Dates: start: 20130610
  7. CYCLOPHOSPHAMIDE (CYCLOPHOSPHAMIDE) (CYCLOPHOSPHAMIDE) [Suspect]
     Active Substance: CYCLOPHOSPHAMIDE
     Indication: BURKITT^S LYMPHOMA
     Dates: start: 20130610
  8. MABTHERA [Suspect]
     Active Substance: RITUXIMAB
     Indication: BURKITT^S LYMPHOMA
     Route: 048
     Dates: start: 20130618
  9. VINCRISTINE (VINCRISTINE) (VINCRISTINE) [Suspect]
     Active Substance: VINCRISTINE
     Indication: BURKITT^S LYMPHOMA
     Dates: start: 20130610

REACTIONS (9)
  - White blood cell count increased [None]
  - Eosinophil count increased [None]
  - Burkitt^s lymphoma [None]
  - Neutropenia [None]
  - Neutrophil count decreased [None]
  - Agranulocytosis [None]
  - Neutrophil count increased [None]
  - Leukopenia [None]
  - Thrombocytopenia [None]

NARRATIVE: CASE EVENT DATE: 20130610
